FAERS Safety Report 8053735-6 (Version None)
Quarter: 2012Q1

REPORT INFORMATION
  Report Type: 
  Country: None (occurrence: None)
  Receive Date: 20120118
  Receipt Date: 20120113
  Transmission Date: 20120608
  Serious: Yes (Hospitalization)
  Sender: FDA-Public Use
  Company Number: JP-PFIZER INC-2011263297

PATIENT
  Age: 67 Year
  Sex: Male

DRUGS (8)
  1. ARMODAFINIL [Concomitant]
     Indication: ORAL CANDIDIASIS
     Dosage: 100 MG, 1X/DAY
     Route: 048
     Dates: start: 20100519, end: 20100529
  2. AMLODIPINE [Concomitant]
     Indication: HYPERTENSION
     Dosage: 5 MG, 1X/DAY
     Route: 048
     Dates: start: 20100519, end: 20100529
  3. EPZICOM [Suspect]
     Indication: HIV INFECTION
     Dosage: 1 DF, 1X/DAY
     Route: 048
     Dates: start: 20100519, end: 20100529
  4. IRBESARTAN [Concomitant]
     Indication: HYPERTENSION
     Dosage: 100 MG, 1X/DAY
     Route: 048
     Dates: start: 20100519, end: 20100529
  5. PLETAL [Concomitant]
     Indication: CAROTID ARTERY STENOSIS
     Dosage: 100 MG, 2X/DAY
     Route: 048
     Dates: start: 20100519, end: 20100529
  6. ZITHROMAX [Suspect]
     Indication: OPPORTUNISTIC INFECTION PROPHYLAXIS
     Dosage: 1200 MG, WEEKLY
     Route: 048
     Dates: start: 20100519, end: 20100529
  7. ISENTRESS [Suspect]
     Indication: HIV INFECTION
     Dosage: 1 DF, 2X/DAY
     Route: 048
     Dates: start: 20100519, end: 20100529
  8. FAMOTIDINE [Concomitant]
     Indication: GASTRITIS
     Dosage: 20 MG, 2X/DAY
     Route: 048
     Dates: start: 20100519, end: 20100529

REACTIONS (2)
  - DECREASED APPETITE [None]
  - PYREXIA [None]
